FAERS Safety Report 8847091 (Version 1)
Quarter: 2012Q4

REPORT INFORMATION
  Report Type: Spontaneous
  Country: US (occurrence: None)
  Receive Date: 20121016
  Receipt Date: 20121016
  Transmission Date: 20130627
  Serious: Yes (Other)
  Sender: FDA-Public Use
  Company Number: AUR-APL-2012-04302

PATIENT
  Sex: Female

DRUGS (2)
  1. MIRTAZAPINE [Suspect]
     Indication: DEPRESSION
     Route: 048
     Dates: start: 20120912, end: 20120914
  2. VITAMIN D (ERGOCALCIFEROL) [Concomitant]

REACTIONS (4)
  - Angioedema [None]
  - Stomatitis [None]
  - Malaise [None]
  - Orthostatic hypotension [None]
